FAERS Safety Report 9587906 (Version 1)
Quarter: 2013Q4

REPORT INFORMATION
  Report Type: Spontaneous
  Country: AR (occurrence: AR)
  Receive Date: 20131003
  Receipt Date: 20131003
  Transmission Date: 20140711
  Serious: Yes (Other)
  Sender: FDA-Public Use
  Company Number: AR-GLAXOSMITHKLINE-A1044059A

PATIENT
  Age: 62 Year
  Sex: Female

DRUGS (2)
  1. TYKERB [Suspect]
     Indication: BREAST CANCER
     Dates: start: 201205
  2. CAPECITABINE [Concomitant]
     Indication: BREAST CANCER

REACTIONS (1)
  - Angioedema [Recovered/Resolved]
